FAERS Safety Report 7072293-6 (Version None)
Quarter: 2010Q4

REPORT INFORMATION
  Report Type: 
  Country: None (occurrence: None)
  Receive Date: 20101029
  Receipt Date: 20100105
  Transmission Date: 20110411
  Serious: No
  Sender: FDA-Public Use
  Company Number: A0837728A

PATIENT
  Age: 80 Year
  Sex: Female

DRUGS (2)
  1. ADVAIR DISKUS 100/50 [Suspect]
     Indication: CHRONIC OBSTRUCTIVE PULMONARY DISEASE
     Dosage: 1PUFF TWICE PER DAY
     Route: 055
     Dates: start: 20091223
  2. FOSAMAX [Concomitant]

REACTIONS (6)
  - DIZZINESS [None]
  - ORAL CANDIDIASIS [None]
  - PARAESTHESIA ORAL [None]
  - PRURITUS [None]
  - TONGUE DISORDER [None]
  - TREMOR [None]
